FAERS Safety Report 5707564-6 (Version None)
Quarter: 2008Q2

REPORT INFORMATION
  Report Type: 
  Country: None (occurrence: None)
  Receive Date: 20080416
  Receipt Date: 20080410
  Transmission Date: 20081010
  Serious: Yes (Life-Threatening, Hospitalization, Other)
  Sender: FDA-Public Use
  Company Number: JP-MERCK-0802USA00923

PATIENT
  Age: 87 Year
  Sex: Female
  Weight: 39 kg

DRUGS (13)
  1. PRIMAXIN [Suspect]
     Indication: INFECTION
     Route: 042
     Dates: start: 20080119, end: 20080119
  2. PRIMAXIN [Suspect]
     Route: 042
     Dates: start: 20080122, end: 20080122
  3. PRIMAXIN [Suspect]
     Route: 042
     Dates: start: 20080124, end: 20080124
  4. PRIMAXIN [Suspect]
     Route: 042
     Dates: start: 20080126, end: 20080126
  5. PRIMAXIN [Suspect]
     Route: 042
     Dates: start: 20080129, end: 20080129
  6. DEPAS [Suspect]
     Indication: RESTLESSNESS
     Route: 048
     Dates: start: 20080119, end: 20080129
  7. DIOVAN [Concomitant]
     Indication: HYPERTENSION
     Route: 048
     Dates: start: 20080119, end: 20080129
  8. NORVASC [Concomitant]
     Indication: HYPERTENSION
     Route: 048
     Dates: start: 20080119, end: 20080129
  9. ASPIRIN [Concomitant]
     Indication: CEREBRAL INFARCTION
     Route: 048
     Dates: start: 20080119, end: 20080129
  10. ARICEPT [Concomitant]
     Indication: DEMENTIA
     Route: 048
     Dates: start: 20080119, end: 20080129
  11. TAKEPRON [Concomitant]
     Indication: GASTRIC ULCER
     Route: 048
     Dates: start: 20080119, end: 20080129
  12. HALCION [Concomitant]
     Indication: INSOMNIA
     Route: 048
     Dates: start: 20080119, end: 20080129
  13. AMOBAN [Concomitant]
     Indication: INSOMNIA
     Route: 048
     Dates: start: 20080119, end: 20080129

REACTIONS (5)
  - CONVULSION [None]
  - DYSARTHRIA [None]
  - DYSPHAGIA [None]
  - OVERDOSE [None]
  - SOMNOLENCE [None]
